FAERS Safety Report 17866522 (Version 2)
Quarter: 2020Q2

REPORT INFORMATION
  Report Type: Spontaneous
  Country: PL (occurrence: PL)
  Receive Date: 20200605
  Receipt Date: 20200616
  Transmission Date: 20200714
  Serious: Yes (Life-Threatening)
  Sender: FDA-Public Use
  Company Number: PL-ASTRAZENECA-2020SE71881

PATIENT
  Age: 46 Year
  Sex: Female

DRUGS (2)
  1. KETIPINOR [Suspect]
     Active Substance: QUETIAPINE FUMARATE
     Indication: PRODUCT USED FOR UNKNOWN INDICATION
     Dosage: 25 MG UP TO 60 TABLETS
     Route: 065
     Dates: start: 20200428
  2. AFOBAM [Suspect]
     Active Substance: ALPRAZOLAM
     Indication: PRODUCT USED FOR UNKNOWN INDICATION
     Dosage: 0,5 MG UP TO 8 TABLETS
     Route: 065
     Dates: start: 20200428

REACTIONS (6)
  - Somnolence [Recovered/Resolved]
  - Suicide attempt [Recovered/Resolved]
  - Psychomotor retardation [Recovered/Resolved]
  - Balance disorder [Recovered/Resolved]
  - Negative thoughts [Recovered/Resolved]
  - Speech disorder [Recovered/Resolved]

NARRATIVE: CASE EVENT DATE: 2020
